FAERS Safety Report 7756190-6 (Version None)
Quarter: 2011Q3

REPORT INFORMATION
  Report Type: 
  Country: None (occurrence: None)
  Receive Date: 20110916
  Receipt Date: 20110821
  Transmission Date: 20111222
  Serious: No
  Sender: FDA-Public Use
  Company Number: US-ABBOTT-11P-163-0848773-00

PATIENT
  Sex: Female

DRUGS (3)
  1. TRILIPIX [Suspect]
     Indication: BLOOD TRIGLYCERIDES INCREASED
     Dates: start: 20110701, end: 20110701
  2. TRILIPIX [Suspect]
     Indication: BLOOD CHOLESTEROL INCREASED
  3. HORMONE REPLACEMENT PATCH [Concomitant]
     Indication: PRODUCT USED FOR UNKNOWN INDICATION

REACTIONS (3)
  - ADVERSE DRUG REACTION [None]
  - MUSCLE SPASMS [None]
  - DIZZINESS [None]
